FAERS Safety Report 12820266 (Version 1)
Quarter: 2016Q4

REPORT INFORMATION
  Report Type: Report from Study
  Country: US (occurrence: US)
  Receive Date: 20161006
  Receipt Date: 20161006
  Transmission Date: 20170207
  Serious: No
  Sender: FDA-Public Use
  Company Number: US-AMGEN-USASL2015127514

PATIENT
  Age: 64 Year
  Sex: Female
  Weight: 74.83 kg

DRUGS (7)
  1. LIPITOR [Concomitant]
     Active Substance: ATORVASTATIN CALCIUM
     Dosage: UNK
  2. MVI                                /01825701/ [Concomitant]
     Active Substance: VITAMINS
     Dosage: UNK
  3. ZANTAC [Concomitant]
     Active Substance: RANITIDINE HYDROCHLORIDE
     Dosage: UNK
  4. NAPROXEN. [Concomitant]
     Active Substance: NAPROXEN
     Dosage: UNK
  5. XOLAIR [Concomitant]
     Active Substance: OMALIZUMAB
     Dosage: UNK
  6. ACIDOPHILUS [Concomitant]
     Active Substance: LACTOBACILLUS ACIDOPHILUS
     Dosage: UNK
  7. PROLIA [Suspect]
     Active Substance: DENOSUMAB
     Indication: PRODUCT USED FOR UNKNOWN INDICATION
     Dosage: 60 UNK, Q6MO
     Route: 030
     Dates: start: 20140405

REACTIONS (4)
  - Toothache [Not Recovered/Not Resolved]
  - Tooth fracture [Not Recovered/Not Resolved]
  - Incorrect route of drug administration [Unknown]
  - Bone density increased [Unknown]

NARRATIVE: CASE EVENT DATE: 20140405
